FAERS Safety Report 16857998 (Version 2)
Quarter: 2019Q4

REPORT INFORMATION
  Report Type: Report from Study
  Country: DE (occurrence: DE)
  Receive Date: 20190926
  Receipt Date: 20191003
  Transmission Date: 20200122
  Serious: Yes (Hospitalization)
  Sender: FDA-Public Use
  Company Number: DE-ELI_LILLY_AND_COMPANY-DE201909008362

PATIENT
  Sex: Female
  Weight: 74 kg

DRUGS (8)
  1. FOLSAN [Concomitant]
     Active Substance: FOLIC ACID
     Indication: PRODUCT USED FOR UNKNOWN INDICATION
     Dosage: UNK, DAILY
     Route: 048
     Dates: start: 20190409
  2. EMEND [Concomitant]
     Active Substance: APREPITANT
     Dosage: 80 MG, CYCLICAL
     Route: 048
     Dates: start: 20190410
  3. CISPLATIN. [Suspect]
     Active Substance: CISPLATIN
     Indication: NON-SMALL CELL LUNG CANCER
     Dosage: 62 MG, UNKNOWN
     Route: 042
     Dates: start: 20190409, end: 20190410
  4. DEXAMETHASON [DEXAMETHASONE] [Concomitant]
     Active Substance: DEXAMETHASONE
     Indication: PRODUCT USED FOR UNKNOWN INDICATION
     Dosage: 12 MG, CYCLICAL
     Route: 048
     Dates: start: 20190409
  5. PEMETREXED. [Suspect]
     Active Substance: PEMETREXED
     Dosage: 890 MG, UNKNOWN
     Route: 042
     Dates: start: 20190709
  6. EMEND [Concomitant]
     Active Substance: APREPITANT
     Indication: PRODUCT USED FOR UNKNOWN INDICATION
     Dosage: 125 MG, CYCLICAL
     Route: 048
     Dates: start: 20190409
  7. PEMETREXED. [Suspect]
     Active Substance: PEMETREXED
     Indication: NON-SMALL CELL LUNG CANCER
     Dosage: 890 MG, UNKNOWN
     Route: 042
     Dates: start: 20190409, end: 20190409
  8. ALOXI [Concomitant]
     Active Substance: PALONOSETRON HYDROCHLORIDE
     Indication: PRODUCT USED FOR UNKNOWN INDICATION
     Dosage: 250 MG, CYCLICAL
     Route: 042
     Dates: start: 20190409

REACTIONS (1)
  - General physical health deterioration [Recovered/Resolved]

NARRATIVE: CASE EVENT DATE: 20190420
